FAERS Safety Report 23089552 (Version 4)
Quarter: 2024Q2

REPORT INFORMATION
  Report Type: Spontaneous
  Country: US (occurrence: US)
  Receive Date: 20231020
  Receipt Date: 20240607
  Transmission Date: 20240716
  Serious: No
  Sender: FDA-Public Use
  Company Number: US-002147023-NVSC2023US225926

PATIENT
  Sex: Male

DRUGS (4)
  1. MEKINIST [Suspect]
     Active Substance: TRAMETINIB DIMETHYL SULFOXIDE
     Indication: Metastases to lymph nodes
     Dosage: 2 MG, QD
     Route: 048
     Dates: start: 202308
  2. MEKINIST [Suspect]
     Active Substance: TRAMETINIB DIMETHYL SULFOXIDE
     Dosage: 1 MG, QD
     Route: 048
     Dates: start: 202308
  3. TAFINLAR [Suspect]
     Active Substance: DABRAFENIB MESYLATE
     Indication: Metastases to lymph nodes
     Dosage: 150 MG, BID (EVERY 12 HOURS)
     Route: 048
     Dates: start: 202308
  4. TAFINLAR [Suspect]
     Active Substance: DABRAFENIB MESYLATE
     Dosage: 75 MG, BID (EVERY 12 HOURS)
     Route: 048
     Dates: start: 202308

REACTIONS (7)
  - Eating disorder [Unknown]
  - Chills [Unknown]
  - Pyrexia [Unknown]
  - Nausea [Unknown]
  - Fatigue [Unknown]
  - Asthenia [Unknown]
  - Product use in unapproved indication [Unknown]
